FAERS Safety Report 9511510 (Version 1)
Quarter: 2013Q1

REPORT INFORMATION
  Report Type: Spontaneous
  Country: US (occurrence: None)
  Receive Date: 20130305
  Receipt Date: 20130305
  Transmission Date: 20140127
  Serious: Yes (Hospitalization)
  Sender: FDA-Public Use
  Company Number: 163-21880-12051809

PATIENT
  Age: 62 Year
  Sex: Female
  Weight: 67.13 kg

DRUGS (11)
  1. REVLIMID (LENALIDOMIDE) (25 MILLIGRAM, CAPSULES) [Suspect]
     Indication: PLASMA CELL MYELOMA
     Dosage: 25 MG, DAILY X 21 DAYS, PO
     Route: 048
     Dates: start: 20120316, end: 20120430
  2. XANAX (ALPRAZOLAM) (UNKNOWN) [Concomitant]
  3. GLYBURIDE (GLIBENCLAMIDE) (UNKNOWN) [Concomitant]
  4. PEPCID (FAMOTIDINE) (UNKNOWN) [Concomitant]
  5. HYDROCHLOROTHIAZIDE (HYDROCHLOROTHIAZIDE) (UNKNOWN) [Concomitant]
  6. SYNTHROID LEVOTHYROXINE SODIUM) (UNKNOWN) [Concomitant]
  7. LISINOPRIL (LISINOPRIL) (UNKNOWN) [Concomitant]
  8. INDERAL (PROPRANOLOL) (UNKNOWN) [Concomitant]
  9. MUTIVITAMINS (MULTIVITAMINS) (UNKNOWN) [Concomitant]
  10. DECADRON [Concomitant]
  11. VICODIN (VICODIN) (UNKNOWN) [Concomitant]

REACTIONS (2)
  - Clostridium difficile colitis [None]
  - Dehydration [None]
